FAERS Safety Report 4467019-6 (Version None)
Quarter: 2004Q3

REPORT INFORMATION
  Report Type: 
  Country: None (occurrence: None)
  Receive Date: 20040929
  Receipt Date: 20040929
  Transmission Date: 20050211
  Serious: Yes (Hospitalization)
  Sender: FDA-Public Use
  Company Number: None

PATIENT
  Sex: Female

DRUGS (7)
  1. OXYCODONE HCL [Suspect]
     Indication: PAIN
     Dosage: 15 MG   Q 4 HR PRN   ORAL
     Route: 048
     Dates: start: 20040317, end: 20040323
  2. LACTULOSE [Concomitant]
  3. PHENYTOIN [Concomitant]
  4. NITROGLYCERIN [Concomitant]
  5. ASPIRIN [Concomitant]
  6. SALSALATE [Concomitant]
  7. BACLOFEN [Concomitant]

REACTIONS (1)
  - ILEUS PARALYTIC [None]
